FAERS Safety Report 13838346 (Version 2)
Quarter: 2017Q3

REPORT INFORMATION
  Report Type: Spontaneous
  Country: US (occurrence: US)
  Receive Date: 20170807
  Receipt Date: 20170908
  Transmission Date: 20171127
  Serious: Yes (Other)
  Sender: FDA-Public Use
  Company Number: US-JNJCP-30000399126

PATIENT
  Sex: Female
  Weight: 51 kg

DRUGS (2)
  1. ZESTRIL 5MG [Concomitant]
     Indication: HYPERTENSION
     Dosage: 5 MG ONE PER DAY SINCE 30 YEARS
  2. NEUTROGENA PRODUCTS [Suspect]
     Active Substance: UNSPECIFIED INGREDIENT
     Indication: SKIN WRINKLING
     Dosage: PEA SIZED AMOUNT
     Route: 061

REACTIONS (1)
  - Basal cell carcinoma [Recovered/Resolved]
